FAERS Safety Report 7676904-3 (Version None)
Quarter: 2011Q3

REPORT INFORMATION
  Report Type: 
  Country: None (occurrence: None)
  Receive Date: 20110811
  Receipt Date: 20110803
  Transmission Date: 20111222
  Serious: Yes (Hospitalization)
  Sender: FDA-Public Use
  Company Number: PHHY2011TR67339

PATIENT
  Age: 16 Year
  Sex: Female
  Weight: 36 kg

DRUGS (3)
  1. EXJADE [Suspect]
     Indication: THALASSAEMIA BETA
     Dosage: 1250 MG, UNK
     Route: 048
     Dates: start: 20080101
  2. EXJADE [Suspect]
     Indication: CHELATION THERAPY
  3. CALCIUM GLUCONATE [Concomitant]
     Dosage: UNK UKN, UNK

REACTIONS (1)
  - PARAESTHESIA [None]
